FAERS Safety Report 6828053-1 (Version None)
Quarter: 2010Q3

REPORT INFORMATION
  Report Type: 
  Country: None (occurrence: None)
  Receive Date: 20100709
  Receipt Date: 20100702
  Transmission Date: 20110219
  Serious: Yes (Hospitalization)
  Sender: FDA-Public Use
  Company Number: B0663539A

PATIENT
  Sex: Female

DRUGS (9)
  1. AUGMENTIN '125' [Suspect]
     Indication: ERYSIPELAS
     Dosage: 1G THREE TIMES PER DAY
     Route: 048
     Dates: start: 20100413, end: 20100414
  2. BRISTOPEN [Suspect]
     Indication: ERYSIPELAS
     Dosage: 2G PER DAY
     Route: 048
     Dates: start: 20100402, end: 20100413
  3. SPIRONOLACTONE [Concomitant]
     Dosage: 1UNIT PER DAY
     Route: 065
  4. FRUSEMIDE [Concomitant]
     Dosage: 1UNIT PER DAY
     Route: 065
  5. DIFFU K [Concomitant]
     Dosage: 1UNIT PER DAY
     Route: 065
  6. PREVISCAN [Concomitant]
     Route: 065
  7. FERO-GRAD VITAMINE C [Concomitant]
     Dosage: 1UNIT PER DAY
     Route: 065
  8. DIPROLENE [Concomitant]
     Route: 065
  9. NEXIUM [Concomitant]
     Dosage: 1UNIT PER DAY
     Route: 065

REACTIONS (5)
  - DERMATITIS BULLOUS [None]
  - GENERALISED ERYTHEMA [None]
  - SKIN DISORDER [None]
  - TOXIC EPIDERMAL NECROLYSIS [None]
  - TOXIC SKIN ERUPTION [None]
